FAERS Safety Report 11184515 (Version 1)
Quarter: 2015Q2

REPORT INFORMATION
  Report Type: Spontaneous
  Country: GB (occurrence: GB)
  Receive Date: 20150612
  Receipt Date: 20150612
  Transmission Date: 20150821
  Serious: Yes (Other)
  Sender: FDA-Public Use
  Company Number: GB-PFIZER INC-2015193161

PATIENT
  Age: 60 Year
  Sex: Male
  Weight: 31.8 kg

DRUGS (10)
  1. CHLORAMPHENICOL [Suspect]
     Active Substance: CHLORAMPHENICOL
     Indication: NECROTISING SCLERITIS
     Dosage: EYE DROPS
  2. CARMELLOSE SODIUM [Suspect]
     Active Substance: CARBOXYMETHYLCELLULOSE SODIUM
     Indication: NECROTISING SCLERITIS
     Route: 061
  3. CARMELLOSE SODIUM [Suspect]
     Active Substance: CARBOXYMETHYLCELLULOSE SODIUM
     Indication: ULCERATIVE KERATITIS
  4. PREDNISOLONE. [Suspect]
     Active Substance: PREDNISOLONE
     Indication: NECROTISING SCLERITIS
     Dosage: 60 MG, UNK
     Route: 048
  5. CHLORAMPHENICOL [Suspect]
     Active Substance: CHLORAMPHENICOL
     Indication: ULCERATIVE KERATITIS
  6. METHYLPREDNISOLONE ACETATE. [Suspect]
     Active Substance: METHYLPREDNISOLONE ACETATE
     Indication: ULCERATIVE KERATITIS
  7. METHYLPREDNISOLONE ACETATE. [Suspect]
     Active Substance: METHYLPREDNISOLONE ACETATE
     Indication: NECROTISING SCLERITIS
     Dosage: UNK PULSES,  5 AT 500MG, 3 AT 1G
     Route: 042
  8. CYCLOPHOSPHAMIDE. [Suspect]
     Active Substance: CYCLOPHOSPHAMIDE
     Indication: NECROTISING SCLERITIS
     Dosage: 500 MG, (15MG / KG) ON 3 OCCASSIONAS
     Route: 042
  9. CYCLOPHOSPHAMIDE. [Suspect]
     Active Substance: CYCLOPHOSPHAMIDE
     Indication: ULCERATIVE KERATITIS
  10. PREDNISOLONE. [Suspect]
     Active Substance: PREDNISOLONE
     Indication: ULCERATIVE KERATITIS

REACTIONS (2)
  - Condition aggravated [Recovered/Resolved]
  - Eye penetration [Recovered/Resolved]
